FAERS Safety Report 21306761 (Version 1)
Quarter: 2022Q3

REPORT INFORMATION
  Report Type: Spontaneous
  Country: NL (occurrence: NL)
  Receive Date: 20220908
  Receipt Date: 20220908
  Transmission Date: 20221026
  Serious: Yes (Disabling)
  Sender: FDA-Public Use
  Company Number: None

PATIENT
  Sex: Female
  Weight: 59 kg

DRUGS (10)
  1. ATORVASTATIN [Suspect]
     Active Substance: ATORVASTATIN
     Indication: Type IIa hyperlipidaemia
     Dosage: STRENGTH: 10MG, 1X PER DAG 5 MG
     Dates: start: 2020
  2. IVABRADINE HYDROCHLORIDE [Suspect]
     Active Substance: IVABRADINE HYDROCHLORIDE
     Indication: Sinus tachycardia
     Dosage: STRENGTH:  7.5 MG, 2X PER DAY 1 TABLET
  3. ISOSORBIDE MONONITRATE [Suspect]
     Active Substance: ISOSORBIDE MONONITRATE
     Indication: Vasospasm
     Dosage: STRENGTH: 25 MG, 1X PER DAY 1 CAPSULE
     Dates: start: 202112
  4. ASCORBIC ACID [Concomitant]
     Active Substance: ASCORBIC ACID
     Dosage: 500 MG TABL
  5. CALCIUM [Concomitant]
     Active Substance: CALCIUM
     Dosage: 1000 MG TABL
  6. CHOLECALCIFEROL [Concomitant]
     Active Substance: CHOLECALCIFEROL
     Dosage: 50 MCG TABL
  7. CYANOCOBALAMIN [Concomitant]
     Active Substance: CYANOCOBALAMIN
     Dosage: STRENGTH:  1000 MCG, 1000MCG TABL
  8. MAGNESIUM CITRATE [Concomitant]
     Active Substance: MAGNESIUM CITRATE
     Dosage: 200 MG TABL
  9. ZINC [Concomitant]
     Active Substance: ZINC
     Dosage: TABL
  10. IVABRADINE HYDROCHLORIDE [Suspect]
     Active Substance: IVABRADINE HYDROCHLORIDE
     Indication: Sinus tachycardia
     Dosage: STRENGTH:  7.5 MG, 2X PER DAY 1 TABLET
     Dates: start: 202109

REACTIONS (2)
  - Pseudohypoglycaemia [Recovering/Resolving]
  - Weight decreased [Recovering/Resolving]
